FAERS Safety Report 15396133 (Version 2)
Quarter: 2018Q3

REPORT INFORMATION
  Report Type: Spontaneous
  Country: GR (occurrence: GR)
  Receive Date: 20180918
  Receipt Date: 20180924
  Transmission Date: 20181010
  Serious: Yes (Other)
  Sender: FDA-Public Use
  Company Number: GR-BAYER-2018-171956

PATIENT
  Age: 36 Year
  Sex: Female

DRUGS (3)
  1. DALACIN C [Concomitant]
     Active Substance: CLINDAMYCIN PHOSPHATE
     Indication: SINUSITIS
     Dosage: UNK
     Dates: start: 20180815, end: 20180825
  2. OCTEGRA [Suspect]
     Active Substance: MOXIFLOXACIN
     Indication: SINUSITIS
     Dosage: 400 MG, QD
     Route: 048
     Dates: start: 20180808, end: 20180815
  3. ZITHROMAX [Concomitant]
     Active Substance: AZITHROMYCIN DIHYDRATE
     Indication: SINUSITIS
     Dosage: UNK
     Dates: start: 20180803, end: 20180806

REACTIONS (9)
  - Ocular hyperaemia [Recovered/Resolved]
  - Photophobia [Not Recovered/Not Resolved]
  - Mydriasis [Not Recovered/Not Resolved]
  - Drug ineffective [None]
  - Corneal disorder [None]
  - Iris atrophy [Not Recovered/Not Resolved]
  - Abnormal sensation in eye [Not Recovered/Not Resolved]
  - Anterior chamber disorder [None]
  - Headache [Recovered/Resolved]

NARRATIVE: CASE EVENT DATE: 201808
